FAERS Safety Report 15570550 (Version 1)
Quarter: 2018Q4

REPORT INFORMATION
  Report Type: Report from Study
  Country: JP (occurrence: JP)
  Receive Date: 20181031
  Receipt Date: 20181031
  Transmission Date: 20190205
  Serious: Yes (Death, Hospitalization, Other)
  Sender: FDA-Public Use
  Company Number: JP-ASTELLAS-2008JP004884

PATIENT
  Age: 53 Year
  Sex: Female
  Weight: 53 kg

DRUGS (20)
  1. LASIX [Concomitant]
     Active Substance: FUROSEMIDE
     Route: 048
  2. BLOPRESS [Concomitant]
     Active Substance: CANDESARTAN CILEXETIL
     Indication: HYPERTENSION
     Route: 048
  3. HYALEIN [Concomitant]
     Active Substance: HYALURONATE SODIUM
     Indication: DRY EYE
     Dosage: UNK UNK, UNKNOWN FREQ.
     Route: 047
  4. TACROLIMUS. [Suspect]
     Active Substance: TACROLIMUS
     Indication: LUPUS NEPHRITIS
     Route: 048
     Dates: start: 20070628, end: 20110901
  5. PREDNISOLONE. [Suspect]
     Active Substance: PREDNISOLONE
     Dosage: UNK UNK, UNKNOWN FREQ.
     Route: 048
     Dates: start: 20081226, end: 20110831
  6. PREDNISOLONE. [Suspect]
     Active Substance: PREDNISOLONE
     Route: 048
     Dates: start: 20110908, end: 20111017
  7. LASIX [Concomitant]
     Active Substance: FUROSEMIDE
     Indication: PROPHYLAXIS
     Route: 048
  8. PREDNISOLONE. [Suspect]
     Active Substance: PREDNISOLONE
     Indication: LUPUS NEPHRITIS
     Route: 048
  9. PREDNISOLONE. [Suspect]
     Active Substance: PREDNISOLONE
     Route: 048
     Dates: end: 20081225
  10. PREDNISOLONE. [Suspect]
     Active Substance: PREDNISOLONE
     Route: 048
     Dates: start: 20110902, end: 20110904
  11. PLETAAL [Concomitant]
     Active Substance: CILOSTAZOL
     Indication: CAROTID ARTERY STENOSIS
     Route: 048
     Dates: start: 20090129
  12. TATHION [Concomitant]
     Active Substance: GLUTATHIONE
     Indication: CATARACT
     Dosage: UNK UNK, UNKNOWN FREQ.
     Route: 047
  13. VIRUHEXAL [Concomitant]
     Active Substance: ACYCLOVIR
     Indication: HERPES ZOSTER
     Route: 065
     Dates: start: 20080517
  14. TRANSAMIN [Concomitant]
     Active Substance: TRANEXAMIC ACID
     Indication: CONJUNCTIVAL HAEMORRHAGE
     Route: 048
  15. PREDNISOLONE. [Suspect]
     Active Substance: PREDNISOLONE
     Route: 048
     Dates: start: 20111018, end: 20111126
  16. GOSHAJINKIGAN [Concomitant]
     Active Substance: HERBALS
     Indication: PROPHYLAXIS
     Route: 048
     Dates: start: 20080314
  17. METHYLPREDNISOLONE SODIUM SUCCINATE. [Concomitant]
     Active Substance: METHYLPREDNISOLONE SODIUM SUCCINATE
     Indication: LUPUS NEPHRITIS
     Route: 065
     Dates: start: 20110905, end: 20110907
  18. ENDOXAN                            /00021102/ [Concomitant]
     Active Substance: CYCLOPHOSPHAMIDE
     Indication: LUPUS NEPHRITIS
     Route: 065
     Dates: start: 20111018, end: 20111018
  19. SAIREITO [Concomitant]
     Active Substance: HERBALS
     Indication: PROPHYLAXIS
     Route: 048
     Dates: end: 20080313
  20. TAMIFLU [Concomitant]
     Active Substance: OSELTAMIVIR PHOSPHATE
     Indication: INFLUENZA
     Route: 048

REACTIONS (11)
  - Dry eye [Not Recovered/Not Resolved]
  - Herpes zoster [Recovered/Resolved]
  - Ovarian cyst [Not Recovered/Not Resolved]
  - Conjunctival haemorrhage [Recovering/Resolving]
  - Influenza [Recovering/Resolving]
  - Acute kidney injury [Not Recovered/Not Resolved]
  - Cataract [Not Recovered/Not Resolved]
  - Neck pain [Unknown]
  - Spinal osteoarthritis [Not Recovered/Not Resolved]
  - Candida sepsis [Fatal]
  - Uterine leiomyoma [Not Recovered/Not Resolved]

NARRATIVE: CASE EVENT DATE: 20080517
